FAERS Safety Report 8121713-4 (Version None)
Quarter: 2012Q1

REPORT INFORMATION
  Report Type: 
  Country: None (occurrence: None)
  Receive Date: 20120207
  Receipt Date: 20120207
  Transmission Date: 20120608
  Serious: Yes (Other)
  Sender: FDA-Public Use
  Company Number: None

PATIENT
  Sex: Male
  Weight: 83.4619 kg

DRUGS (2)
  1. ANDROGEL [Suspect]
     Indication: BLOOD TESTOSTERONE DECREASED
     Dosage: 1 DOSE * PUMP PER DAY 1 PER DAY INJECTION ; 1 FOR 3 WEEKS
  2. ANDROGEL [Suspect]
     Indication: BLOOD TESTOSTERONE DECREASED
     Dosage: 1 DOSE * PUMP PER DAY 1 PER DAY INJECTION ; 1 FOR 3 WEEKS

REACTIONS (1)
  - HAEMORRHAGE URINARY TRACT [None]
